FAERS Safety Report 20446166 (Version 2)
Quarter: 2024Q1

REPORT INFORMATION
  Report Type: Report from Study
  Country: CA (occurrence: CA)
  Receive Date: 20220208
  Receipt Date: 20240125
  Transmission Date: 20240410
  Serious: Yes (Other)
  Sender: FDA-Public Use
  Company Number: CA-PFIZER INC-202200183737

PATIENT
  Age: 85 Year
  Sex: Male

DRUGS (23)
  1. METHOTREXATE SODIUM [Suspect]
     Active Substance: METHOTREXATE SODIUM
     Route: 065
  2. ASPIRIN [Suspect]
     Active Substance: ASPIRIN
     Route: 065
  3. ALENDRONATE [Suspect]
     Active Substance: ALENDRONATE SODIUM
     Dosage: UNK
  4. DILTIAZEM [Suspect]
     Active Substance: DILTIAZEM
     Dosage: UNK
     Route: 065
  5. ELIGARD [Suspect]
     Active Substance: LEUPROLIDE ACETATE
     Indication: Prostate cancer
     Dosage: 45 MG, 1 EVERY 6 MONTHS
     Route: 058
  6. ELIGARD [Suspect]
     Active Substance: LEUPROLIDE ACETATE
     Dosage: 45 MG, 1 EVERY 6 MONTHS
     Route: 058
  7. ELIGARD [Suspect]
     Active Substance: LEUPROLIDE ACETATE
     Dosage: UNK
     Route: 065
  8. ELIGARD [Suspect]
     Active Substance: LEUPROLIDE ACETATE
     Dosage: 45 MG, 1 EVERY 6 MONTHS
     Route: 058
  9. ELIGARD [Suspect]
     Active Substance: LEUPROLIDE ACETATE
     Dosage: UNK
     Route: 065
  10. FLOMAX [Suspect]
     Active Substance: TAMSULOSIN HYDROCHLORIDE
     Route: 065
  11. FOLIC ACID [Suspect]
     Active Substance: FOLIC ACID
     Route: 065
  12. PLAVIX [Suspect]
     Active Substance: CLOPIDOGREL BISULFATE
     Route: 065
  13. PREDNISONE [Suspect]
     Active Substance: PREDNISONE
     Dosage: UNK
  14. RAMIPRIL [Suspect]
     Active Substance: RAMIPRIL
     Route: 065
  15. RISEDRONATE SODIUM [Suspect]
     Active Substance: RISEDRONATE SODIUM
     Route: 065
  16. SIMVASTATIN [Suspect]
     Active Substance: SIMVASTATIN
     Route: 065
  17. SYNTHROID [Suspect]
     Active Substance: LEVOTHYROXINE SODIUM
     Route: 065
  18. VITAMIN B12 [Suspect]
     Active Substance: CYANOCOBALAMIN
     Route: 065
  19. VITAMIN D NOS [Suspect]
     Active Substance: VITAMIN D NOS
     Route: 065
  20. CLOPIDOGREL [Suspect]
     Active Substance: CLOPIDOGREL BISULFATE
     Route: 065
  21. CYANOCOBALAMIN [Suspect]
     Active Substance: CYANOCOBALAMIN
     Route: 065
  22. ERGOCALCIFEROL [Suspect]
     Active Substance: ERGOCALCIFEROL
  23. TAMSULOSIN HYDROCHLORIDE [Suspect]
     Active Substance: TAMSULOSIN HYDROCHLORIDE
     Route: 065

REACTIONS (9)
  - Fatigue [Unknown]
  - Injection site haemorrhage [Unknown]
  - Embolic stroke [Unknown]
  - Gynaecomastia [Unknown]
  - Hot flush [Unknown]
  - Nocturia [Unknown]
  - Prostate cancer [Unknown]
  - Abdominal distension [Unknown]
  - Decreased appetite [Unknown]
